FAERS Safety Report 4432434-3 (Version None)
Quarter: 2004Q3

REPORT INFORMATION
  Report Type: 
  Country: None (occurrence: None)
  Receive Date: 20040820
  Receipt Date: 20040810
  Transmission Date: 20050211
  Serious: Yes (Death)
  Sender: FDA-Public Use
  Company Number: US-JNJFOC-20040804813

PATIENT
  Sex: Male

DRUGS (3)
  1. FLEXERIL [Suspect]
  2. CODEINE (CODEINE) [Suspect]
  3. HYDROCODONE (HYDROCODONE) [Suspect]

REACTIONS (2)
  - DRUG LEVEL ABOVE THERAPEUTIC [None]
  - VICTIM OF CRIME [None]
